FAERS Safety Report 16581028 (Version 1)
Quarter: 2019Q3

REPORT INFORMATION
  Report Type: Spontaneous
  Country: DE (occurrence: DE)
  Receive Date: 20190716
  Receipt Date: 20190716
  Transmission Date: 20191004
  Serious: Yes (Life-Threatening, Hospitalization)
  Sender: FDA-Public Use
  Company Number: DE-SA-2019SA190455

PATIENT
  Age: 47 Year
  Sex: Male

DRUGS (12)
  1. FORXIGA [Suspect]
     Active Substance: DAPAGLIFLOZIN
     Dosage: 10 MG, 1-0-0-0
     Route: 065
  2. LANTUS [Suspect]
     Active Substance: INSULIN GLARGINE
     Dosage: 40 IU, 0-0-0-1
     Route: 065
  3. ACTRAPID [Suspect]
     Active Substance: INSULIN HUMAN
     Dosage: NK IU, AFTER BZ
     Route: 065
  4. CITALOPRAM [Concomitant]
     Active Substance: CITALOPRAM HYDROBROMIDE
     Dosage: 10 MG, 1-0-0-0
     Route: 065
  5. IRON [Concomitant]
     Active Substance: IRON
     Dosage: 100 MG, 1-0-0-0
     Route: 065
  6. HYDROCHLOROTHIAZID [Concomitant]
     Active Substance: HYDROCHLOROTHIAZIDE
     Dosage: 25 MG, 1-0-0-0
     Route: 065
  7. ATORVASTATIN [Concomitant]
     Active Substance: ATORVASTATIN
     Dosage: 41 MG, 0-0-1-0
     Route: 065
  8. GABAPENTIN. [Concomitant]
     Active Substance: GABAPENTIN
     Dosage: 300 MG, 1-0-1-0
     Route: 065
  9. SITAGLIPTIN [Suspect]
     Active Substance: SITAGLIPTIN
     Dosage: 50 MG, 1-0-1-0
     Route: 065
  10. RAMIPRIL. [Concomitant]
     Active Substance: RAMIPRIL
     Dosage: 5 MG, 1-0-0-0
     Route: 065
  11. ACETYLSALICYLIC ACID [Concomitant]
     Active Substance: ASPIRIN
     Dosage: 100 MG, 1-0-0-0
     Route: 065
  12. METFORMIN HYDROCHLORIDE. [Suspect]
     Active Substance: METFORMIN HYDROCHLORIDE
     Dosage: 1000 MG, 1-0-1-0
     Route: 065

REACTIONS (2)
  - Acute kidney injury [Unknown]
  - Hypoglycaemia [Unknown]
